FAERS Safety Report 8604255-9 (Version None)
Quarter: 2012Q3

REPORT INFORMATION
  Report Type: 
  Country: None (occurrence: None)
  Receive Date: 20120806
  Receipt Date: 20120726
  Transmission Date: 20120928
  Serious: Yes (Hospitalization)
  Sender: FDA-Public Use
  Company Number: USA/USA/12/0025315

PATIENT
  Age: 65 Year
  Sex: Male

DRUGS (2)
  1. DONEPEZIL HYDRCHLORIDE [Suspect]
     Indication: PRODUCT USED FOR UNKNOWN INDICATION
  2. FLUOXETINE [Suspect]
     Indication: PRODUCT USED FOR UNKNOWN INDICATION
     Dosage: 20 MG, 1 IN 1 D

REACTIONS (11)
  - ABNORMAL BEHAVIOUR [None]
  - HEART RATE INCREASED [None]
  - TOXICITY TO VARIOUS AGENTS [None]
  - DROOLING [None]
  - DRUG INTERACTION [None]
  - AGITATION [None]
  - DIARRHOEA [None]
  - FAECAL INCONTINENCE [None]
  - LACRIMATION INCREASED [None]
  - CHOLINERGIC SYNDROME [None]
  - SALIVARY HYPERSECRETION [None]
